FAERS Safety Report 7150610-6 (Version None)
Quarter: 2010Q4

REPORT INFORMATION
  Report Type: 
  Country: None (occurrence: None)
  Receive Date: 20101210
  Receipt Date: 20101202
  Transmission Date: 20110411
  Serious: Yes (Hospitalization, Other)
  Sender: FDA-Public Use
  Company Number: FR-PFIZER INC-2010162535

PATIENT
  Age: 10 Year
  Sex: Female

DRUGS (4)
  1. ATARAX [Suspect]
     Dosage: 50 MG, UNK
     Route: 042
     Dates: start: 20100925, end: 20101108
  2. VINCRISTINE SULFATE [Suspect]
     Dosage: 1.5 MG/M2, AT DAY-8, DAY-15, DAY-22 AND DAY-29
     Route: 042
     Dates: start: 20101002, end: 20101023
  3. NALBUPHINE [Suspect]
     Dosage: 28 MG, UNK
     Route: 042
     Dates: start: 20100328, end: 20101108
  4. LAROXYL [Suspect]
     Dosage: 50 DROPS
     Route: 042
     Dates: start: 20101005, end: 20101014

REACTIONS (3)
  - CHOLESTASIS [None]
  - ILEUS PARALYTIC [None]
  - INTESTINAL OBSTRUCTION [None]
